FAERS Safety Report 4883391-7 (Version None)
Quarter: 2006Q1

REPORT INFORMATION
  Report Type: 
  Country: None (occurrence: None)
  Receive Date: 20060117
  Receipt Date: 20060117
  Transmission Date: 20060701
  Serious: Yes (Other)
  Sender: FDA-Public Use
  Company Number: None

PATIENT
  Sex: Male
  Weight: 92.5338 kg

DRUGS (12)
  1. CYTOXAN [Suspect]
     Indication: PROSTATE CANCER
     Dosage: 763 MG QD X 3 DAYS IV
     Route: 042
     Dates: start: 20051214, end: 20051216
  2. FLUDARABINE [Suspect]
     Indication: PROSTATE CANCER
     Dosage: 44 MG QD X 3 DAYS IV
     Route: 042
     Dates: start: 20051220, end: 20060103
  3. GVAX VACCINE [Suspect]
     Indication: PROSTATE CANCER
     Dosage: 6.4 ML EVERY 2 WEEKS SQ
     Route: 058
     Dates: start: 20051220, end: 20060103
  4. LUPRON [Concomitant]
  5. COUMADIN [Concomitant]
  6. FRAGMIN [Concomitant]
  7. HEPARIN [Concomitant]
  8. MORPHINE SULFATE [Concomitant]
  9. LASIX [Concomitant]
  10. MEGACE [Concomitant]
  11. COMPAZINE [Concomitant]
  12. VICODIN [Concomitant]

REACTIONS (3)
  - HAEMATOCRIT DECREASED [None]
  - HAEMOGLOBIN DECREASED [None]
  - PLATELET COUNT DECREASED [None]
